FAERS Safety Report 11174192 (Version 1)
Quarter: 2015Q2

REPORT INFORMATION
  Report Type: Spontaneous
  Country: US (occurrence: US)
  Receive Date: 20150609
  Receipt Date: 20150609
  Transmission Date: 20150821
  Serious: Yes (Hospitalization, Other)
  Sender: FDA-Public Use
  Company Number: US-SUN PHARMACEUTICAL INDUSTRIES LTD-2015SUN01395

PATIENT
  Age: 35 Year
  Sex: Female

DRUGS (1)
  1. LITHIUM. [Suspect]
     Active Substance: LITHIUM
     Indication: PRODUCT USED FOR UNKNOWN INDICATION
     Route: 065

REACTIONS (4)
  - Unresponsive to stimuli [Recovering/Resolving]
  - Toxicity to various agents [Recovered/Resolved]
  - Respiratory failure [Recovering/Resolving]
  - Cardiomyopathy acute [Recovering/Resolving]
